FAERS Safety Report 25446134 (Version 1)
Quarter: 2025Q2

REPORT INFORMATION
  Report Type: Spontaneous
  Country: US (occurrence: None)
  Receive Date: 20250617
  Receipt Date: 20250617
  Transmission Date: 20250716
  Serious: Yes (Other)
  Sender: FDA-CTU
  Company Number: None

PATIENT
  Sex: Female

DRUGS (10)
  1. DASATINIB [Suspect]
     Active Substance: DASATINIB
     Indication: Chronic myeloid leukaemia
     Dosage: TAKE 1 TABLET (80MG) BY MOUTH DAILY. TAKE WITH OR WITHOUT FOOD.
     Route: 048
  2. ALLEGRA ALRG TAB 180MG [Concomitant]
  3. AZITHROMYCIN [Suspect]
     Active Substance: AZITHROMYCIN
  4. BOTOX INJ 100UNIT [Concomitant]
  5. CALCIUM 500 TAB +D [Concomitant]
  6. COLACE CAP 100MG [Concomitant]
  7. CYCLOSPORINE EMU 0.05% OP [Concomitant]
  8. DASATINIB [Concomitant]
     Active Substance: DASATINIB
  9. DOXYCYCL HYC CAP 1 00MG [Concomitant]
  10. FLUOXETINE [Concomitant]
     Active Substance: FLUOXETINE HYDROCHLORIDE

REACTIONS (4)
  - Insomnia [None]
  - Constipation [None]
  - Pleural effusion [None]
  - Oedema [None]
